FAERS Safety Report 9890042 (Version 1)
Quarter: 2014Q1

REPORT INFORMATION
  Report Type: Spontaneous
  Country: US (occurrence: US)
  Receive Date: 20140212
  Receipt Date: 20140212
  Transmission Date: 20141002
  Serious: No
  Sender: FDA-Public Use
  Company Number: US-BIOGENIDEC-2014BI010989

PATIENT
  Sex: Female

DRUGS (8)
  1. TECFIDERA [Suspect]
     Indication: MULTIPLE SCLEROSIS
     Route: 048
     Dates: start: 201401, end: 201401
  2. TECFIDERA [Suspect]
     Indication: MULTIPLE SCLEROSIS
     Route: 048
     Dates: start: 201401, end: 201401
  3. VITAMIN D [Concomitant]
  4. SUPER B COMPLEX [Concomitant]
  5. AMBIEN PAK [Concomitant]
  6. CELEXA [Concomitant]
  7. DITROPAN XL [Concomitant]
  8. BACLOFEN [Concomitant]

REACTIONS (1)
  - Adverse event [Unknown]
